FAERS Safety Report 15700199 (Version 2)
Quarter: 2019Q4

REPORT INFORMATION
  Report Type: Report from Study
  Country: US (occurrence: US)
  Receive Date: 20181207
  Receipt Date: 20191007
  Transmission Date: 20200122
  Serious: Yes (Hospitalization, Other)
  Sender: FDA-Public Use
  Company Number: US-GILEAD-2018-0378949

PATIENT
  Age: 16 Year
  Sex: Female

DRUGS (17)
  1. TOBI [Concomitant]
     Active Substance: TOBRAMYCIN
  2. VANCOMYCIN [Concomitant]
     Active Substance: VANCOMYCIN
  3. AZTREONAM LYSINE [Suspect]
     Active Substance: AZTREONAM LYSINE
     Indication: PSEUDOMONAS INFECTION
     Dosage: 75 MG, TID
     Route: 055
     Dates: start: 201304
  4. MIRALAX [Concomitant]
     Active Substance: POLYETHYLENE GLYCOL 3350
  5. ALBUTEROL [SALBUTAMOL] [Concomitant]
     Active Substance: ALBUTEROL
  6. MULTI-VIT [Concomitant]
     Active Substance: VITAMINS
  7. NASONEX [Concomitant]
     Active Substance: MOMETASONE FUROATE
  8. COLISTIMETHATE SODIUM. [Concomitant]
     Active Substance: COLISTIMETHATE SODIUM
  9. CEFEPIME [Concomitant]
     Active Substance: CEFEPIME HYDROCHLORIDE
  10. CREON 5 [Concomitant]
  11. DOCUSATE [Concomitant]
     Active Substance: DOCUSATE
  12. SYMDEKO [Concomitant]
     Active Substance: IVACAFTOR\TEZACAFTOR
     Dosage: MISSED 3 DAYS UNKNOWN DATES
  13. ERYTHROCIN [ERYTHROMYCIN] [Concomitant]
     Active Substance: ERYTHROMYCIN
  14. FLOVENT [Concomitant]
     Active Substance: FLUTICASONE PROPIONATE
  15. NOVOLOG [Concomitant]
     Active Substance: INSULIN ASPART
  16. PREVACID [Concomitant]
     Active Substance: LANSOPRAZOLE
  17. AZTREONAM LYSINE [Suspect]
     Active Substance: AZTREONAM LYSINE
     Indication: CYSTIC FIBROSIS
     Dosage: 75 MG, TID
     Route: 055
     Dates: start: 20150401

REACTIONS (1)
  - Cystic fibrosis [Recovered/Resolved]

NARRATIVE: CASE EVENT DATE: 201811
